FAERS Safety Report 4423675-X (Version None)
Quarter: 2004Q3

REPORT INFORMATION
  Report Type: 
  Country: None (occurrence: None)
  Receive Date: 20040806
  Receipt Date: 20040729
  Transmission Date: 20050211
  Serious: Yes (Other)
  Sender: FDA-Public Use
  Company Number: 2004225672FR

PATIENT
  Sex: Female

DRUGS (1)
  1. DOSTINEX [Suspect]
     Dates: start: 20020101, end: 20040101

REACTIONS (2)
  - CARDIAC DISORDER [None]
  - HYPOTENSION [None]
